FAERS Safety Report 24444445 (Version 2)
Quarter: 2024Q4

REPORT INFORMATION
  Report Type: Report from Study
  Country: US (occurrence: US)
  Receive Date: 20241016
  Receipt Date: 20241017
  Transmission Date: 20250114
  Serious: No
  Sender: ROCHE
  Company Number: US-ROCHE-2789186

PATIENT
  Age: 55 Year
  Sex: Female

DRUGS (8)
  1. RITUXAN [Suspect]
     Active Substance: RITUXIMAB
     Indication: Myasthenia gravis
     Dosage: DATE OF TREATMENT: 02/APR/2021, 01/OCT/2021 (500 MG), 01/APR/2022?DATE OF SERVICE: 07/OCT/2023
     Route: 041
  2. APAP [Concomitant]
     Active Substance: ACETAMINOPHEN
  3. ASPIRIN [Concomitant]
     Active Substance: ASPIRIN
  4. LIPITOR [Concomitant]
     Active Substance: ATORVASTATIN CALCIUM
  5. ZYRTEC [Concomitant]
     Active Substance: CETIRIZINE HYDROCHLORIDE
  6. ZADITOR [Concomitant]
     Active Substance: KETOTIFEN FUMARATE
  7. SINGULAIR [Concomitant]
     Active Substance: MONTELUKAST SODIUM
  8. MESTINON [Concomitant]
     Active Substance: PYRIDOSTIGMINE BROMIDE

REACTIONS (2)
  - Off label use [Unknown]
  - No adverse event [Unknown]
